FAERS Safety Report 10723712 (Version 2)
Quarter: 2015Q2

REPORT INFORMATION
  Report Type: Spontaneous
  Country: US (occurrence: US)
  Receive Date: 20150120
  Receipt Date: 20150420
  Transmission Date: 20150821
  Serious: Yes (Hospitalization, Other)
  Sender: FDA-Public Use
  Company Number: US-PFIZER INC-2015022075

PATIENT
  Sex: Female

DRUGS (5)
  1. CELEBREX [Suspect]
     Active Substance: CELECOXIB
     Indication: ARTHRITIS
     Dosage: 200 MG, 1X/DAY
  2. LYRICA [Suspect]
     Active Substance: PREGABALIN
     Dosage: 75MG (AM); 150MG (PM),
  3. LYRICA [Suspect]
     Active Substance: PREGABALIN
     Dosage: UNK
  4. LYRICA [Suspect]
     Active Substance: PREGABALIN
     Indication: FIBROMYALGIA
     Dosage: 75MG (AM); 150MG (PM)
  5. ELAVIL [Concomitant]
     Active Substance: AMITRIPTYLINE HYDROCHLORIDE
     Dosage: UNK

REACTIONS (1)
  - Breast cancer [Recovered/Resolved]
